FAERS Safety Report 24211094 (Version 1)
Quarter: 2024Q3

REPORT INFORMATION
  Report Type: Report from Study
  Country: CA (occurrence: CA)
  Receive Date: 20240814
  Receipt Date: 20240814
  Transmission Date: 20241016
  Serious: Yes (Other)
  Sender: BAUSCH AND LOMB
  Company Number: CA-BAUSCH-BL-2024-012186

PATIENT
  Age: 68 Year
  Sex: Male

DRUGS (2)
  1. SILIQ [Suspect]
     Active Substance: BRODALUMAB
     Indication: Psoriasis
     Dosage: 210 MG /1.5 ML, WEEKLY, WEEK 0-WEEK 2
     Route: 058
     Dates: start: 20231018, end: 202311
  2. SILIQ [Suspect]
     Active Substance: BRODALUMAB
     Dosage: 210 MG /1.5 ML, Q2 WEEKS
     Route: 058
     Dates: start: 202311

REACTIONS (3)
  - Arthropathy [Unknown]
  - Illness [Unknown]
  - Inappropriate schedule of product administration [Unknown]

NARRATIVE: CASE EVENT DATE: 20240101
